FAERS Safety Report 10717939 (Version 2)
Quarter: 2015Q1

REPORT INFORMATION
  Report Type: Spontaneous
  Country: NL (occurrence: NL)
  Receive Date: 20150116
  Receipt Date: 20150127
  Transmission Date: 20150721
  Serious: No
  Sender: FDA-Public Use
  Company Number: NL-TAKEDA-2015TUS000461

PATIENT
  Age: 56 Year
  Sex: Male
  Weight: 107 kg

DRUGS (11)
  1. MAPROTILINE [Concomitant]
     Active Substance: MAPROTILINE
     Dosage: 50 MG, BID
     Route: 048
     Dates: start: 20110222
  2. PRUNACOLON SYRUP [Concomitant]
     Dosage: 30 ML, QD
     Route: 048
     Dates: start: 2008
  3. FOLIC ACID. [Concomitant]
     Active Substance: FOLIC ACID
     Dosage: 5 MG, 1/WEEK
     Route: 048
     Dates: start: 20110929
  4. ENTYVIO [Suspect]
     Active Substance: VEDOLIZUMAB
     Indication: CROHN^S DISEASE
     Dosage: 300 MG, UNK
     Route: 042
     Dates: start: 20141209
  5. FLURAZEPAM [Concomitant]
     Active Substance: FLURAZEPAM\FLURAZEPAM HYDROCHLORIDE
     Dosage: 15 MG, UNK
     Route: 048
     Dates: start: 201403
  6. LOPERAMIDE [Concomitant]
     Active Substance: LOPERAMIDE
     Dosage: 4 MG, QD, WHEN NECESSARY
     Route: 048
     Dates: start: 20120313
  7. RISPERDAL [Concomitant]
     Active Substance: RISPERIDONE
     Dosage: 25 MG, 2/WEEK
     Route: 030
     Dates: start: 20080403
  8. LITHIUM 40 MG [Concomitant]
     Dosage: 800 MG, QD
     Route: 048
     Dates: start: 200612
  9. METHOTREXATE [Concomitant]
     Active Substance: METHOTREXATE
     Dosage: 15 MG, 1/WEEK
     Route: 048
     Dates: start: 20141128
  10. VITAMINE B COMPLEX [Concomitant]
     Dosage: 1000 ?G, QD
     Route: 048
     Dates: start: 20120313
  11. NEXIUM                            40 MG [Concomitant]
     Dosage: 40 MG, BID
     Route: 048
     Dates: start: 200612

REACTIONS (1)
  - Thrombosis [Unknown]

NARRATIVE: CASE EVENT DATE: 20150104
